FAERS Safety Report 23326384 (Version 1)
Quarter: 2023Q4

REPORT INFORMATION
  Report Type: Spontaneous
  Country: US (occurrence: None)
  Receive Date: 20231220
  Receipt Date: 20231220
  Transmission Date: 20240109
  Serious: Yes (Hospitalization)
  Sender: FDA-Public Use
  Company Number: None

PATIENT
  Sex: Female

DRUGS (1)
  1. TEZSPIRE [Suspect]
     Active Substance: TEZEPELUMAB-EKKO
     Indication: Product used for unknown indication
     Dosage: 210 MG/1091ML SUBCUTANEOUS?INJECT 1 PEN (210 MG) UNDER THE SKIN (SUBCUTANEOUS INJECTION) EVERY 4 WEE
     Route: 058
     Dates: start: 20230906

REACTIONS (4)
  - Asthma [None]
  - Pneumonia [None]
  - Upper respiratory tract infection [None]
  - Impaired quality of life [None]
